FAERS Safety Report 9521811 (Version 2)
Quarter: 2013Q3

REPORT INFORMATION
  Report Type: Spontaneous
  Country: IT (occurrence: IT)
  Receive Date: 20130913
  Receipt Date: 20130917
  Transmission Date: 20140515
  Serious: Yes (Other)
  Sender: FDA-Public Use
  Company Number: PHHY2013IT099093

PATIENT
  Age: 75 Year
  Sex: Male

DRUGS (14)
  1. ONBREZ [Suspect]
     Indication: CHRONIC OBSTRUCTIVE PULMONARY DISEASE
     Dosage: 300 UG, QD
     Dates: start: 201209, end: 20130828
  2. ACLIDINIUM [Concomitant]
  3. OXYGEN [Concomitant]
     Indication: CHRONIC OBSTRUCTIVE PULMONARY DISEASE
     Dosage: UNK
  4. CHINOPLUS [Concomitant]
  5. BRETARIS GENUAIR [Concomitant]
  6. COUMADIN ^BOOTS^ [Concomitant]
  7. LANOXIN [Concomitant]
  8. LASIX [Concomitant]
  9. CANRENOL [Concomitant]
  10. LOSAPREX [Concomitant]
  11. OMNIC [Concomitant]
  12. MEDROL [Concomitant]
  13. ZYLORIC [Concomitant]
  14. SALBUTAMOL [Concomitant]

REACTIONS (5)
  - Hypoventilation [Recovering/Resolving]
  - Dyspnoea [Recovering/Resolving]
  - Carbon dioxide increased [Recovering/Resolving]
  - Breath odour [Recovering/Resolving]
  - Oxygen saturation decreased [Recovering/Resolving]
